FAERS Safety Report 12712130 (Version 1)
Quarter: 2016Q3

REPORT INFORMATION
  Report Type: Spontaneous
  Country: US (occurrence: US)
  Receive Date: 20160902
  Receipt Date: 20160902
  Transmission Date: 20161109
  Serious: Yes (Other)
  Sender: FDA-Public Use
  Company Number: None

PATIENT
  Age: 68 Year
  Sex: Male

DRUGS (2)
  1. EPINEPHRINE. [Suspect]
     Active Substance: EPINEPHRINE
  2. ALARIS IV PUMP [Suspect]
     Active Substance: DEVICE

REACTIONS (4)
  - Device issue [None]
  - Blood pressure increased [None]
  - Heart rate increased [None]
  - Drug administration error [None]

NARRATIVE: CASE EVENT DATE: 20160726
